FAERS Safety Report 10073100 (Version 1)
Quarter: 2014Q2

REPORT INFORMATION
  Report Type: Report from Study
  Country: IT (occurrence: IT)
  Receive Date: 20140411
  Receipt Date: 20140411
  Transmission Date: 20141212
  Serious: Yes (Death)
  Sender: FDA-Public Use
  Company Number: IT-BAYER-2014-053970

PATIENT
  Age: 59 Year
  Sex: Male

DRUGS (5)
  1. DACARBAZINE [Suspect]
     Indication: HODGKIN^S DISEASE
     Dosage: 375 MG/M2, ON DAY 1 AND 11 OF EACH CYCLE
     Route: 042
  2. DOXORUBICIN [Suspect]
     Indication: HODGKIN^S DISEASE
     Dosage: 35 MG/M2, DAY 1 AND 11 OF EACH CYCLE
     Route: 042
  3. BLEOMYCIN [Suspect]
     Indication: HODGKIN^S DISEASE
     Dosage: 10 MG/M2, DAY 1 AND 11 OF EACH CYCLE
     Route: 042
  4. VINBLASTIN [Suspect]
     Indication: HODGKIN^S DISEASE
     Dosage: 6 MG/M2, DAY 1 AND 11 OF EACH CYCLE
     Route: 042
  5. LENOGRASTIM [Concomitant]
     Dosage: DAILY DOSE 236 ?G

REACTIONS (1)
  - Interstitial lung disease [Fatal]
